FAERS Safety Report 5086480-X (Version None)
Quarter: 2006Q3

REPORT INFORMATION
  Report Type: 
  Country: None (occurrence: None)
  Receive Date: 20060823
  Receipt Date: 20060814
  Transmission Date: 20061208
  Serious: Yes (Other)
  Sender: FDA-Public Use
  Company Number: BR-JNJFOC-20060803942

PATIENT
  Age: 46 Year
  Sex: Male
  Weight: 70 kg

DRUGS (2)
  1. HALDOL [Suspect]
     Indication: ALCOHOLISM
     Route: 048
  2. CHLORPROMAZINE [Suspect]
     Indication: SUICIDE ATTEMPT
     Route: 048

REACTIONS (4)
  - HYPERHIDROSIS [None]
  - MIOSIS [None]
  - OVERDOSE [None]
  - SUICIDE ATTEMPT [None]
